FAERS Safety Report 8586708-5 (Version None)
Quarter: 2012Q3

REPORT INFORMATION
  Report Type: 
  Country: None (occurrence: None)
  Receive Date: 20120810
  Receipt Date: 20120806
  Transmission Date: 20120928
  Serious: No
  Sender: FDA-Public Use
  Company Number: AU-PFIZER INC-2012172692

PATIENT
  Age: 63 Year
  Sex: Male

DRUGS (14)
  1. DUATROL SR [Suspect]
     Dosage: TWO 6 HOURLY, AS NEEDED
  2. ALDOMET [Suspect]
     Dosage: 750 MG, 2X/DAY
  3. ZOCOR [Suspect]
     Dosage: 80 MG, 1X/DAY
  4. NOVORAPID [Suspect]
     Dosage: UNK
  5. METFORMIN HCL [Suspect]
     Dosage: 1000 MG, 2X/DAY
  6. PRISTIQ [Suspect]
     Indication: DEPRESSION
     Dosage: 50 MG, 1X/DAY
  7. ACTOS [Suspect]
     Dosage: 15 MG, 1X/DAY
  8. LANTUS [Suspect]
     Dosage: UNK
  9. NEXIUM [Suspect]
     Dosage: 20 MG, 1X/DAY
  10. ASPIRIN [Suspect]
     Dosage: 100 MG, EACH MORNING
  11. LERCANIDIPINE [Suspect]
     Dosage: 20 MG, 1X/DAY AT NIGHT
  12. IRBESARTAN AND HYDROCHLOROTHIAZIDE [Suspect]
     Dosage: 1 DF, 1X/DAY
  13. RAMIPRIL [Suspect]
     Dosage: 10 MG, 1X/DAY AT NIGHT
  14. METOPROLOL [Suspect]
     Dosage: 1 DF, 2X/DAY

REACTIONS (1)
  - HYPONATRAEMIA [None]
